FAERS Safety Report 24684255 (Version 1)
Quarter: 2024Q4

REPORT INFORMATION
  Report Type: Spontaneous
  Country: SK (occurrence: SK)
  Receive Date: 20241202
  Receipt Date: 20241202
  Transmission Date: 20250114
  Serious: Yes (Other)
  Sender: AMGEN
  Company Number: SK-ABBVIE-6005350

PATIENT
  Age: 59 Year
  Sex: Male

DRUGS (3)
  1. ADALIMUMAB [Suspect]
     Active Substance: ADALIMUMAB
     Indication: Psoriatic arthropathy
     Dosage: UNK
     Route: 058
     Dates: start: 202312, end: 202407
  2. METHOTREXATE [Concomitant]
     Active Substance: METHOTREXATE
     Indication: Product used for unknown indication
     Dosage: 15 MILLIGRAM (WEEKLY)
     Route: 065
     Dates: start: 202111
  3. METHOTREXATE [Concomitant]
     Active Substance: METHOTREXATE
     Dosage: 17.5 MILLIGRAM (WEEKLY)
     Route: 065
     Dates: start: 202211

REACTIONS (9)
  - Urate nephropathy [Unknown]
  - Renal impairment [Unknown]
  - Albuminuria [Unknown]
  - Blood urea increased [Unknown]
  - Proteinuria [Unknown]
  - Musculoskeletal discomfort [Unknown]
  - Arthritis [Unknown]
  - Therapeutic product effect incomplete [Unknown]
  - Haematuria [Unknown]

NARRATIVE: CASE EVENT DATE: 20240301
